FAERS Safety Report 16174555 (Version 1)
Quarter: 2019Q2

REPORT INFORMATION
  Report Type: Spontaneous
  Country: JP (occurrence: JP)
  Receive Date: 20190409
  Receipt Date: 20190409
  Transmission Date: 20190711
  Serious: Yes (Hospitalization, Other)
  Sender: FDA-Public Use
  Company Number: JP-ELI_LILLY_AND_COMPANY-JP201904004007

PATIENT
  Age: 22 Year
  Sex: Female

DRUGS (45)
  1. MAGMITT [Concomitant]
     Active Substance: MAGNESIUM OXIDE
     Indication: SCHIZOPHRENIA
     Dosage: 1980 MG, QD
     Route: 048
     Dates: start: 20130318
  2. CLOZARIL [Interacting]
     Active Substance: CLOZAPINE
     Dosage: 50 MG, DAILY
     Route: 048
     Dates: start: 20130325, end: 20130331
  3. CLOZARIL [Interacting]
     Active Substance: CLOZAPINE
     Dosage: 200 MG, DAILY
     Route: 048
     Dates: start: 20130417, end: 20130421
  4. CLOZARIL [Interacting]
     Active Substance: CLOZAPINE
     Dosage: 250 MG, DAILY
     Route: 048
     Dates: start: 20130426, end: 20130508
  5. CLOZARIL [Interacting]
     Active Substance: CLOZAPINE
     Dosage: 275 MG, DAILY
     Route: 048
     Dates: start: 20130509, end: 20130515
  6. CLOZARIL [Interacting]
     Active Substance: CLOZAPINE
     Dosage: 350 MG, DAILY
     Route: 048
     Dates: start: 20130530, end: 20130606
  7. MYSLEE [Concomitant]
     Active Substance: ZOLPIDEM TARTRATE
     Indication: SCHIZOPHRENIA
     Dosage: 5 MG, QD
     Route: 048
     Dates: start: 20130522
  8. OLANZAPINE. [Interacting]
     Active Substance: OLANZAPINE
     Dosage: 8 MG, DAILY
     Route: 048
     Dates: start: 20130412, end: 20130414
  9. RISPERDAL [Interacting]
     Active Substance: RISPERIDONE
     Indication: SCHIZOPHRENIA
     Dosage: 1 MG, QD
     Route: 048
     Dates: start: 20130319, end: 20130619
  10. CLOZARIL [Interacting]
     Active Substance: CLOZAPINE
     Indication: SCHIZOPHRENIA
     Dosage: 12.5 MG, QD
     Route: 048
     Dates: start: 20130319, end: 20130321
  11. CLOZARIL [Interacting]
     Active Substance: CLOZAPINE
     Dosage: 125 MG, DAILY
     Route: 048
     Dates: start: 20130408, end: 20130411
  12. CLOZARIL [Interacting]
     Active Substance: CLOZAPINE
     Dosage: 300 MG, DAILY
     Route: 048
     Dates: start: 20130516, end: 20130529
  13. HORIZON [Concomitant]
     Active Substance: DIAZEPAM
     Indication: SCHIZOPHRENIA
     Dosage: 10 MG, DAILY
     Route: 048
     Dates: start: 20130529, end: 20130609
  14. NASIROBIN [Concomitant]
     Indication: SCHIZOPHRENIA
     Dosage: 10 MG, QD
     Route: 048
     Dates: start: 20130322
  15. OLANZAPINE. [Interacting]
     Active Substance: OLANZAPINE
     Dosage: 7.5 MG, DAILY
     Route: 048
     Dates: start: 20130408, end: 20130411
  16. CLOZARIL [Interacting]
     Active Substance: CLOZAPINE
     Dosage: 25 MG, DAILY
     Route: 048
     Dates: start: 20130322, end: 20130324
  17. CLOZARIL [Interacting]
     Active Substance: CLOZAPINE
     Dosage: 75 MG, DAILY
     Route: 048
     Dates: start: 20130401, end: 20130404
  18. CLOZARIL [Interacting]
     Active Substance: CLOZAPINE
     Dosage: 100 MG, DAILY
     Route: 048
     Dates: start: 20130405, end: 20130407
  19. CLOZARIL [Interacting]
     Active Substance: CLOZAPINE
     Dosage: 175 MG, DAILY
     Route: 048
     Dates: start: 20130415, end: 20130416
  20. CLOZARIL [Interacting]
     Active Substance: CLOZAPINE
     Dosage: 225 MG, DAILY
     Route: 048
     Dates: start: 20130422, end: 20130425
  21. CLOZARIL [Interacting]
     Active Substance: CLOZAPINE
     Dosage: 400 MG, DAILY
     Route: 048
     Dates: start: 20130607, end: 20130619
  22. WYPAX [Concomitant]
     Active Substance: LORAZEPAM
     Dosage: 0.5 MG, DAILY
     Route: 048
     Dates: start: 20130704, end: 20130710
  23. GOODMIN [Concomitant]
     Active Substance: BROTIZOLAM
     Indication: SCHIZOPHRENIA
     Dosage: 0.25 MG, QD
     Route: 048
     Dates: end: 20130619
  24. OLANZAPINE. [Interacting]
     Active Substance: OLANZAPINE
     Dosage: 10 MG, DAILY
     Route: 048
     Dates: start: 20130405, end: 20130407
  25. HORIZON [Concomitant]
     Active Substance: DIAZEPAM
     Dosage: 10 MG, DAILY
     Route: 048
     Dates: start: 20131114, end: 20140319
  26. QUETIAPINE. [Concomitant]
     Active Substance: QUETIAPINE
     Indication: PRODUCT USED FOR UNKNOWN INDICATION
     Dosage: 200 MG, DAILY
     Route: 048
     Dates: start: 20130319, end: 20130416
  27. QUETIAPINE. [Concomitant]
     Active Substance: QUETIAPINE
     Dosage: 100 MG, DAILY
     Route: 048
     Dates: start: 20130417, end: 20130418
  28. OLANZAPINE. [Suspect]
     Active Substance: OLANZAPINE
     Indication: SCHIZOPHRENIA
     Dosage: 20 MG, DAILY
     Route: 048
     Dates: start: 20130319, end: 20130328
  29. CLOZARIL [Interacting]
     Active Substance: CLOZAPINE
     Dosage: 150 MG, DAILY
     Route: 048
     Dates: start: 20130412, end: 20130414
  30. CLOZARIL [Interacting]
     Active Substance: CLOZAPINE
     Dosage: 400 MG, DAILY
     Route: 048
     Dates: start: 20130607, end: 20130619
  31. ROHYPNOL [Concomitant]
     Active Substance: FLUNITRAZEPAM
     Dosage: 1 MG, DAILY
     Route: 048
     Dates: start: 20130426, end: 20131225
  32. LENDORMIN [Concomitant]
     Active Substance: BROTIZOLAM
     Indication: SCHIZOPHRENIA
     Dosage: 0.25 MG, QD
     Route: 048
     Dates: start: 20130624
  33. CLOZARIL [Interacting]
     Active Substance: CLOZAPINE
     Dosage: 400 MG, DAILY
     Route: 048
     Dates: start: 20130808
  34. CLOZARIL [Interacting]
     Active Substance: CLOZAPINE
     Dosage: 325 MG, DAILY
     Route: 048
  35. WYPAX [Concomitant]
     Active Substance: LORAZEPAM
     Dosage: 1 MG, DAILY
     Route: 048
     Dates: start: 20130904
  36. HORIZON [Concomitant]
     Active Substance: DIAZEPAM
     Dosage: 5 MG, DAILY
     Route: 048
     Dates: start: 20140220, end: 20140806
  37. QUETIAPINE. [Concomitant]
     Active Substance: QUETIAPINE
     Dosage: 50 MG, DAILY
     Route: 048
     Dates: start: 20130419, end: 20130421
  38. MEIACT [Concomitant]
     Active Substance: CEFDITOREN PIVOXIL
     Indication: SCHIZOPHRENIA
     Dosage: 300 MG, QD
     Route: 048
     Dates: start: 20130410, end: 20130414
  39. KAKKONTO [CINNAMOMUM CASSIA BARK;EPHEDRA SPP. [Concomitant]
     Indication: PROPHYLAXIS
     Dosage: 7500 MG, QD
     Route: 048
     Dates: start: 20130413, end: 20130415
  40. CLOZARIL [Interacting]
     Active Substance: CLOZAPINE
     Dosage: 450 MG, DAILY
     Route: 048
     Dates: start: 20130620, end: 20130807
  41. WYPAX [Concomitant]
     Active Substance: LORAZEPAM
     Indication: SCHIZOPHRENIA
     Dosage: 1.5 MG, DAILY
     Route: 048
     Dates: start: 20130606, end: 20130626
  42. ROHYPNOL [Concomitant]
     Active Substance: FLUNITRAZEPAM
     Indication: SCHIZOPHRENIA
     Dosage: 2 MG, DAILY
     Route: 048
     Dates: end: 20130425
  43. OLANZAPINE. [Interacting]
     Active Substance: OLANZAPINE
     Dosage: 15 MG, DAILY
     Route: 048
     Dates: start: 20130329, end: 20130331
  44. OLANZAPINE. [Interacting]
     Active Substance: OLANZAPINE
     Dosage: 12.5 MG, DAILY
     Route: 048
     Dates: start: 20130401, end: 20130404
  45. WYPAX [Concomitant]
     Active Substance: LORAZEPAM
     Dosage: 1 MG, DAILY
     Route: 048
     Dates: start: 20130627, end: 20130703

REACTIONS (32)
  - Salivary hypersecretion [Recovering/Resolving]
  - Gastritis [Recovered/Resolved]
  - Seizure [Not Recovered/Not Resolved]
  - Nausea [Recovering/Resolving]
  - Heart rate increased [Recovering/Resolving]
  - Moaning [Unknown]
  - Menstruation irregular [Unknown]
  - Electroencephalogram abnormal [Recovering/Resolving]
  - Nausea [Unknown]
  - Lymphocyte count decreased [Recovered/Resolved]
  - Blood pressure diastolic decreased [Unknown]
  - Somnolence [Recovered/Resolved]
  - Blood prolactin increased [Unknown]
  - Appendicitis [Recovered/Resolved]
  - Blood glucose increased [Unknown]
  - Neutrophil count increased [Recovered/Resolved]
  - Pyrexia [Unknown]
  - Drug interaction [Unknown]
  - Abdominal pain [Recovered/Resolved]
  - White blood cell count increased [Recovered/Resolved]
  - Generalised tonic-clonic seizure [Recovering/Resolving]
  - Atonic seizures [Unknown]
  - Eosinophil count decreased [Unknown]
  - Blood pressure systolic decreased [Unknown]
  - Tongue biting [Unknown]
  - Basophil count increased [Unknown]
  - Loss of consciousness [Recovered/Resolved]
  - Depressed level of consciousness [Recovered/Resolved]
  - Faeces soft [Recovered/Resolved]
  - Dysmenorrhoea [Not Recovered/Not Resolved]
  - Constipation [Recovered/Resolved]
  - Abdominal pain [Unknown]

NARRATIVE: CASE EVENT DATE: 20130323
